FAERS Safety Report 20105396 (Version 5)
Quarter: 2022Q2

REPORT INFORMATION
  Report Type: Report from Study
  Country: CO (occurrence: CO)
  Receive Date: 20211124
  Receipt Date: 20220408
  Transmission Date: 20220721
  Serious: Yes (Hospitalization)
  Sender: FDA-Public Use
  Company Number: CO-BIOGEN-2021BI01071232

PATIENT
  Age: 30 Year
  Sex: Male
  Weight: 64 kg

DRUGS (3)
  1. TYSABRI [Suspect]
     Active Substance: NATALIZUMAB
     Indication: Multiple sclerosis
     Route: 042
     Dates: start: 20210721, end: 20210721
  2. TYSABRI [Suspect]
     Active Substance: NATALIZUMAB
     Route: 042
     Dates: start: 20211122
  3. TYSABRI [Suspect]
     Active Substance: NATALIZUMAB
     Route: 042
     Dates: start: 20210721, end: 20211122

REACTIONS (3)
  - Multiple sclerosis relapse [Not Recovered/Not Resolved]
  - Depression [Recovered/Resolved]
  - CSF oligoclonal band present [Unknown]

NARRATIVE: CASE EVENT DATE: 20211015
